FAERS Safety Report 14911454 (Version 6)
Quarter: 2018Q3

REPORT INFORMATION
  Report Type: Report from Study
  Country: US (occurrence: US)
  Receive Date: 20180518
  Receipt Date: 20180730
  Transmission Date: 20181010
  Serious: Yes (Hospitalization)
  Sender: FDA-Public Use
  Company Number: US-GLENMARK PHARMACEUTICALS-2018GMK035139

PATIENT

DRUGS (4)
  1. BLINDED BETAMETHASONE DIPROPIONATE/CALCIPOTRIENE (C) [Suspect]
     Active Substance: BETAMETHASONE DIPROPIONATE\CALCIPOTRIENE
     Indication: PSORIASIS
     Dosage: 1 APPLICATION AT BEDTIME
     Route: 061
     Dates: start: 20180423, end: 20180503
  2. BLINDED BETAMETHASONE DIPROPIONATE/CALCIPOTRIENE (I) [Suspect]
     Active Substance: BETAMETHASONE DIPROPIONATE\CALCIPOTRIENE
     Indication: PSORIASIS
     Dosage: 1 APPLICATION AT BEDTIME
     Route: 061
     Dates: start: 20180423, end: 20180503
  3. BLINDED PLACEBO [Suspect]
     Active Substance: INVESTIGATIONAL PRODUCT
     Indication: PSORIASIS
     Dosage: 1 APPLICATION AT BEDTIME
     Route: 061
     Dates: start: 20180423, end: 20180503
  4. IBUPROFEN. [Concomitant]
     Active Substance: IBUPROFEN
     Indication: PHARYNGITIS
     Dosage: 400 MG, PRN
     Route: 048
     Dates: start: 20180427, end: 20180430

REACTIONS (1)
  - Multiple sclerosis [Recovering/Resolving]

NARRATIVE: CASE EVENT DATE: 20180505
